FAERS Safety Report 6511769-4 (Version None)
Quarter: 2009Q4

REPORT INFORMATION
  Report Type: 
  Country: None (occurrence: None)
  Receive Date: 20091222
  Receipt Date: 20090406
  Transmission Date: 20100525
  Serious: No
  Sender: FDA-Public Use
  Company Number: US-ASTRAZENECA-2009UW08665

PATIENT
  Age: 57 Year
  Sex: Male
  Weight: 95.3 kg

DRUGS (1)
  1. CRESTOR [Suspect]
     Route: 048
     Dates: start: 20080701

REACTIONS (1)
  - HAIR GROWTH ABNORMAL [None]
